FAERS Safety Report 10078710 (Version 5)
Quarter: 2014Q3

REPORT INFORMATION
  Report Type: Report from Study
  Country: HU (occurrence: HU)
  Receive Date: 20140415
  Receipt Date: 20140707
  Transmission Date: 20150326
  Serious: Yes (Other)
  Sender: FDA-Public Use
  Company Number: HU-MPIJNJ-2014JNJ001086

PATIENT

DRUGS (1)
  1. VELCADE [Suspect]
     Active Substance: BORTEZOMIB
     Indication: PRODUCT USED FOR UNKNOWN INDICATION
     Dosage: UNK
     Route: 065
     Dates: start: 20140228, end: 20140624

REACTIONS (18)
  - Tremor [Recovering/Resolving]
  - Hypertension [Unknown]
  - Chills [Unknown]
  - Nausea [Not Recovered/Not Resolved]
  - Pruritus [Not Recovered/Not Resolved]
  - Hunger [Not Recovered/Not Resolved]
  - Balance disorder [Unknown]
  - Epistaxis [Recovered/Resolved]
  - Burning sensation [Recovering/Resolving]
  - Dry mouth [Not Recovered/Not Resolved]
  - Fatigue [Not Recovered/Not Resolved]
  - Dizziness [Recovering/Resolving]
  - Oesophageal pain [Recovered/Resolved]
  - Dyspepsia [Recovering/Resolving]
  - Herpes zoster [Recovering/Resolving]
  - Bone pain [Unknown]
  - Asthenia [Not Recovered/Not Resolved]
  - Headache [Recovered/Resolved]
